FAERS Safety Report 6886980-3 (Version None)
Quarter: 2010Q3

REPORT INFORMATION
  Report Type: 
  Country: None (occurrence: None)
  Receive Date: 20100730
  Receipt Date: 20100721
  Transmission Date: 20110219
  Serious: Yes (Other)
  Sender: FDA-Public Use
  Company Number: DE-JNJFOC-20100702904

PATIENT
  Age: 39 Year
  Sex: Female

DRUGS (4)
  1. CAELYX [Suspect]
     Indication: BREAST CANCER METASTATIC
     Route: 042
  2. NAVOBAN [Concomitant]
     Route: 065
  3. CORTISONE [Concomitant]
     Route: 065
  4. EMEND [Concomitant]
     Route: 065

REACTIONS (2)
  - ELECTROCARDIOGRAM ABNORMAL [None]
  - INFUSION RELATED REACTION [None]
